FAERS Safety Report 7059962-9 (Version None)
Quarter: 2010Q4

REPORT INFORMATION
  Report Type: 
  Country: None (occurrence: None)
  Receive Date: 20101025
  Receipt Date: 20101019
  Transmission Date: 20110411
  Serious: Yes (Other)
  Sender: FDA-Public Use
  Company Number: US-JNJFOC-20100804210

PATIENT
  Sex: Female
  Weight: 63.5 kg

DRUGS (6)
  1. DURAGESIC-100 [Suspect]
     Indication: FIBROMYALGIA
     Route: 062
  2. DURAGESIC-100 [Suspect]
     Route: 062
  3. LISINOPRIL [Suspect]
     Indication: RENAL IMPAIRMENT
     Route: 048
  4. PERCOCET [Concomitant]
     Indication: BREAKTHROUGH PAIN
     Route: 048
  5. MAXALT [Concomitant]
     Indication: MIGRAINE
     Route: 048
  6. IMITREX [Concomitant]
     Indication: MIGRAINE
     Route: 058

REACTIONS (9)
  - BARRETT'S OESOPHAGUS [None]
  - BLOOD CHOLESTEROL INCREASED [None]
  - CONSTIPATION [None]
  - GASTROOESOPHAGEAL REFLUX DISEASE [None]
  - MIGRAINE [None]
  - NAUSEA [None]
  - PRODUCT ADHESION ISSUE [None]
  - RENAL IMPAIRMENT [None]
  - WRONG TECHNIQUE IN DRUG USAGE PROCESS [None]
